FAERS Safety Report 19669968 (Version 1)
Quarter: 2021Q3

REPORT INFORMATION
  Report Type: Spontaneous
  Country: IT (occurrence: IT)
  Receive Date: 20210806
  Receipt Date: 20210806
  Transmission Date: 20211014
  Serious: Yes (Hospitalization)
  Sender: FDA-Public Use
  Company Number: IT-ASTRAZENECA-2021A656981

PATIENT
  Age: 72 Year
  Sex: Male

DRUGS (3)
  1. DRUG NOT SPECIFIED [Concomitant]
     Active Substance: UNSPECIFIED INGREDIENT
     Indication: BENIGN PROSTATIC HYPERPLASIA
     Route: 065
  2. FASENRA [Suspect]
     Active Substance: BENRALIZUMAB
     Indication: ASTHMA
     Dosage: UNKNOWN
     Route: 058
     Dates: start: 2019
  3. RELVAR [Concomitant]
     Active Substance: FLUTICASONE FUROATE\VILANTEROL TRIFENATATE
     Route: 065

REACTIONS (2)
  - Respiratory failure [Unknown]
  - Pulmonary fibrosis [Unknown]

NARRATIVE: CASE EVENT DATE: 20210727
